FAERS Safety Report 4463931-2 (Version None)
Quarter: 2004Q3

REPORT INFORMATION
  Report Type: 
  Country: None (occurrence: None)
  Receive Date: 20040929
  Receipt Date: 20040920
  Transmission Date: 20050211
  Serious: Yes (Hospitalization)
  Sender: FDA-Public Use
  Company Number: 2004234629US

PATIENT
  Age: 29 Year
  Sex: Female
  Weight: 70.3 kg

DRUGS (3)
  1. MEDROL [Suspect]
     Indication: ROAD TRAFFIC ACCIDENT
     Dates: start: 20040817, end: 20040801
  2. SOLU-MEDROL [Suspect]
     Indication: ROAD TRAFFIC ACCIDENT
     Dates: start: 20040816, end: 20040817
  3. CORTISONE (CORTISONE) [Suspect]
     Indication: INTERVERTEBRAL DISC DISORDER
     Dates: start: 20040812

REACTIONS (10)
  - ABDOMINAL DISTENSION [None]
  - BLOOD PRESSURE INCREASED [None]
  - COELIAC DISEASE [None]
  - CYSTITIS [None]
  - GASTRIC ULCER HAEMORRHAGE [None]
  - HEART RATE INCREASED [None]
  - HYPERHIDROSIS [None]
  - ROAD TRAFFIC ACCIDENT [None]
  - TREMOR [None]
  - WEIGHT INCREASED [None]
